FAERS Safety Report 9482185 (Version 1)
Quarter: 2013Q3

REPORT INFORMATION
  Report Type: Report from Study
  Country: US (occurrence: US)
  Receive Date: 20130828
  Receipt Date: 20130828
  Transmission Date: 20140515
  Serious: Yes (Hospitalization)
  Sender: FDA-Public Use
  Company Number: US-JNJFOC-20130811660

PATIENT
  Age: 16 Year
  Sex: Female
  Weight: 42.18 kg

DRUGS (7)
  1. REMICADE [Suspect]
     Indication: INFLAMMATORY BOWEL DISEASE
     Route: 042
     Dates: start: 20101215, end: 20111216
  2. 6-MP [Suspect]
     Indication: PRODUCT USED FOR UNKNOWN INDICATION
     Route: 065
  3. 6-MP [Suspect]
     Indication: PRODUCT USED FOR UNKNOWN INDICATION
     Route: 065
  4. CIMZIA [Concomitant]
     Route: 065
  5. CIMZIA [Concomitant]
     Route: 065
     Dates: start: 20120126
  6. LIALDA [Concomitant]
     Route: 065
  7. PREDNISONE [Concomitant]
     Route: 065

REACTIONS (1)
  - Adverse drug reaction [Recovered/Resolved]
